FAERS Safety Report 4334328-0 (Version None)
Quarter: 2004Q2

REPORT INFORMATION
  Report Type: 
  Country: None (occurrence: None)
  Receive Date: 20040405
  Receipt Date: 20040322
  Transmission Date: 20050107
  Serious: Yes (Hospitalization)
  Sender: FDA-Public Use
  Company Number: SEWYE657123MAR04

PATIENT
  Age: 53 Year
  Sex: Female

DRUGS (11)
  1. EFFEXOR [Suspect]
     Indication: DEPRESSION
     Dosage: UNKNOWN; ORAL
     Route: 048
     Dates: start: 19960401, end: 19961230
  2. INTRONA (INTERFERON ALFA, , 0) [Suspect]
     Indication: CHRONIC MYELOID LEUKAEMIA
     Dosage: 10 MILLION IU, 1 DOSAGE FORM CYCLIC; SC
     Route: 058
     Dates: start: 19931027
  3. INTRONA (INTERFERON ALFA, , 0) [Suspect]
     Dosage: 10 MILLION IU, 1 DOSAGE FORM CYCLIC; SC
     Route: 058
     Dates: start: 19950301, end: 19961230
  4. HYDRA (HYDROXYCARBAMIDE) [Concomitant]
  5. HYDREA [Concomitant]
  6. CERUBIDIN (DAUNORUBICIN HYDROCHLORIDE) [Concomitant]
  7. CYTARABINE [Concomitant]
  8. CYTARABINE [Concomitant]
  9. AMEKRIN (AMSACRINE) [Concomitant]
  10. TROMBYL (ACETYLSALICYLIC ACID) [Concomitant]
  11. SENSAVAL (NORTRIPTYLINE HYDROCHLORIDE) [Concomitant]

REACTIONS (21)
  - BLOOD CREATININE INCREASED [None]
  - CARDIAC FAILURE [None]
  - CARDIOMEGALY [None]
  - CHEST DISCOMFORT [None]
  - CHRONIC MYELOID LEUKAEMIA [None]
  - COUGH [None]
  - DIALYSIS [None]
  - DYSPNOEA EXERTIONAL [None]
  - EJECTION FRACTION DECREASED [None]
  - FATIGUE [None]
  - HYPERKALAEMIA [None]
  - HYPONATRAEMIA [None]
  - LEFT VENTRICULAR FAILURE [None]
  - PERICARDIAL EFFUSION [None]
  - PNEUMONITIS [None]
  - RENAL FAILURE [None]
  - RESPIRATORY DISORDER [None]
  - TACHYCARDIA [None]
  - VASCULITIS [None]
  - WEIGHT DECREASED [None]
  - WEIGHT INCREASED [None]
